FAERS Safety Report 4995236-5 (Version None)
Quarter: 2006Q2

REPORT INFORMATION
  Report Type: 
  Country: None (occurrence: None)
  Receive Date: 20060508
  Receipt Date: 20050825
  Transmission Date: 20061013
  Serious: Yes (Death)
  Sender: FDA-Public Use
  Company Number: US-MERCK-0508USA04254

PATIENT
  Age: 41 Year
  Sex: Male
  Weight: 114 kg

DRUGS (1)
  1. VIOXX [Suspect]
     Indication: BACK INJURY
     Route: 048
     Dates: start: 20020501, end: 20021102

REACTIONS (1)
  - MYOCARDIAL INFARCTION [None]
